FAERS Safety Report 19876684 (Version 1)
Quarter: 2021Q3

REPORT INFORMATION
  Report Type: Spontaneous
  Country: FR (occurrence: FR)
  Receive Date: 20210923
  Receipt Date: 20210923
  Transmission Date: 20211014
  Serious: Yes (Other)
  Sender: FDA-Public Use
  Company Number: NVSC2021FR211959

PATIENT
  Age: 62 Year

DRUGS (3)
  1. DARZALEX [Suspect]
     Active Substance: DARATUMUMAB
     Indication: AMYLOIDOSIS
     Dosage: UNK
     Route: 065
  2. LENALIDOMIDE [Suspect]
     Active Substance: LENALIDOMIDE
     Indication: AMYLOIDOSIS
     Dosage: UNK
     Route: 065
  3. DEXAMETHASONE. [Suspect]
     Active Substance: DEXAMETHASONE
     Indication: AMYLOIDOSIS
     Dosage: UNK
     Route: 065

REACTIONS (4)
  - Photophobia [Unknown]
  - Conjunctivitis [Unknown]
  - Product use in unapproved indication [Unknown]
  - Off label use [Unknown]
